FAERS Safety Report 6316857-3 (Version None)
Quarter: 2009Q3

REPORT INFORMATION
  Report Type: 
  Country: None (occurrence: None)
  Receive Date: 20090820
  Receipt Date: 20090810
  Transmission Date: 20100115
  Serious: Yes (Other)
  Sender: FDA-Public Use
  Company Number: GB-ROCHE-650015

PATIENT
  Age: 26 Year
  Sex: Female

DRUGS (2)
  1. TAMIFLU [Suspect]
     Indication: DRUG USE FOR UNKNOWN INDICATION
     Route: 065
     Dates: start: 20090714, end: 20090719
  2. ACETAMINOPHEN [Concomitant]

REACTIONS (8)
  - ABDOMINAL PAIN UPPER [None]
  - DELIRIUM [None]
  - DEPRESSION [None]
  - FEELING ABNORMAL [None]
  - HEADACHE [None]
  - NAUSEA [None]
  - NIGHTMARE [None]
  - VOMITING [None]
